FAERS Safety Report 18365685 (Version 2)
Quarter: 2020Q4

REPORT INFORMATION
  Report Type: Spontaneous
  Country: NZ (occurrence: NZ)
  Receive Date: 20201009
  Receipt Date: 20201109
  Transmission Date: 20210114
  Serious: Yes (Hospitalization)
  Sender: FDA-Public Use
  Company Number: NZ-STRIDES ARCOLAB LIMITED-2020SP011945

PATIENT
  Age: 15 Year
  Sex: Male
  Weight: 49.2 kg

DRUGS (25)
  1. ITRACONAZOLE. [Suspect]
     Active Substance: ITRACONAZOLE
     Indication: BRONCHOPULMONARY ASPERGILLOSIS ALLERGIC
     Dosage: 100 MILLIGRAM, PER DAY
     Route: 048
  2. PREDNISOLONE. [Interacting]
     Active Substance: PREDNISOLONE
     Dosage: 10 MILLIGRAM, PER DAY
     Route: 048
  3. PREDNISOLONE. [Interacting]
     Active Substance: PREDNISOLONE
     Dosage: 5 MILLIGRAM, PER DAY
     Route: 048
  4. TOBRAMYCIN. [Concomitant]
     Active Substance: TOBRAMYCIN
     Indication: BRONCHOPULMONARY ASPERGILLOSIS ALLERGIC
     Dosage: UNK
     Route: 042
  5. CETIRIZINE [Concomitant]
     Active Substance: CETIRIZINE HYDROCHLORIDE
     Indication: PRODUCT USED FOR UNKNOWN INDICATION
     Dosage: 10 MILLIGRAM, DAILY
     Route: 048
  6. ZINC. [Concomitant]
     Active Substance: ZINC
     Indication: PRODUCT USED FOR UNKNOWN INDICATION
     Dosage: 15 MILLIGRAM, DAILY
     Route: 048
  7. FERROUS SULFATE. [Concomitant]
     Active Substance: FERROUS SULFATE
     Indication: PRODUCT USED FOR UNKNOWN INDICATION
     Dosage: 325 MILLIGRAM, DAILY
     Route: 048
  8. SALBUTAMOL [Concomitant]
     Active Substance: ALBUTEROL
     Indication: PRODUCT USED FOR UNKNOWN INDICATION
     Dosage: 100 MICROGRAM, BID
  9. VITABDECK [Concomitant]
     Indication: PRODUCT USED FOR UNKNOWN INDICATION
     Dosage: 4 DOSAGE FORM, DAILY
     Route: 048
  10. SERETIDE [Interacting]
     Active Substance: FLUTICASONE PROPIONATE\SALMETEROL XINAFOATE
     Indication: BRONCHOPULMONARY ASPERGILLOSIS ALLERGIC
     Dosage: UNK,  2 PUFFS INHALATION TWICE A DAY
  11. INSULIN GLARGINE [Concomitant]
     Active Substance: INSULIN GLARGINE
     Indication: CYSTIC FIBROSIS RELATED DIABETES
     Dosage: 10 UNITS, DAILY
     Route: 065
  12. CREON [Concomitant]
     Active Substance: PANCRELIPASE AMYLASE\PANCRELIPASE LIPASE\PANCRELIPASE PROTEASE
     Indication: PRODUCT USED FOR UNKNOWN INDICATION
     Dosage: UP TO 25 TABS, DAILY
     Route: 048
  13. ISOPHANE INSULIN [Concomitant]
     Active Substance: INSULIN NOS
     Indication: PRODUCT USED FOR UNKNOWN INDICATION
     Dosage: 5 UNITS DAILY (0.1 UNIT/KG/DAY)
     Route: 065
  14. FLUTICASONE PROPIONATE. [Interacting]
     Active Substance: FLUTICASONE PROPIONATE
     Indication: BRONCHOPULMONARY ASPERGILLOSIS ALLERGIC
     Dosage: 125 MICROGRAM, 2 PUFFS INHALATION TWICE A DAY (FLIXOTIDE)
  15. CEFTAZIDIME. [Concomitant]
     Active Substance: CEFTAZIDIME
     Indication: BRONCHOPULMONARY ASPERGILLOSIS ALLERGIC
     Dosage: UNK
     Route: 042
  16. TESTOSTERONE. [Concomitant]
     Active Substance: TESTOSTERONE
     Indication: PRODUCT USED FOR UNKNOWN INDICATION
     Dosage: 50 MILLIGRAM, MONTHLY
     Route: 030
  17. VITAMIN A NOS [Concomitant]
     Active Substance: VITAMIN A
     Indication: PRODUCT USED FOR UNKNOWN INDICATION
     Dosage: 10000 UNITS, DAILY
     Route: 048
  18. PREDNISOLONE. [Interacting]
     Active Substance: PREDNISOLONE
     Indication: BRONCHOPULMONARY ASPERGILLOSIS ALLERGIC
     Dosage: 40 MILLIGRAM, PER DAY
     Route: 048
  19. PREDNISOLONE. [Interacting]
     Active Substance: PREDNISOLONE
     Dosage: 20 MILLIGRAM, PER DAY
     Route: 048
  20. VITAMIN K [Concomitant]
     Active Substance: PHYTONADIONE
     Indication: PRODUCT USED FOR UNKNOWN INDICATION
     Dosage: 10 MILLIGRAM, 2 TIMES A WEEK
     Route: 048
  21. HYPERTONIC SALINE SOLUTION [Concomitant]
     Active Substance: SODIUM CHLORIDE
     Indication: PRODUCT USED FOR UNKNOWN INDICATION
     Dosage: 4 MILLILITER, BID, NEBULISATION
     Route: 065
  22. MACROGOL 400 [Concomitant]
     Active Substance: POLYETHYLENE GLYCOL 400
     Indication: PRODUCT USED FOR UNKNOWN INDICATION
     Dosage: 1 SACHET DAILY
     Route: 048
  23. SERETIDE [Interacting]
     Active Substance: FLUTICASONE PROPIONATE\SALMETEROL XINAFOATE
     Dosage: UNK,  2 PUFFS INHALATION TWICE A DAY
  24. FLUTICASONE PROPIONATE. [Interacting]
     Active Substance: FLUTICASONE PROPIONATE
     Dosage: 50 MICROGRAM/SPRAY,  ONE SPRAY IN EACH NOSTRIL TWICE A DAY(FLIXONASE)
     Route: 045
  25. GLUCOSE [Interacting]
     Active Substance: DEXTROSE
     Indication: PRODUCT USED FOR UNKNOWN INDICATION
     Dosage: UNK
     Route: 065

REACTIONS (12)
  - Lethargy [Unknown]
  - Polydipsia [Unknown]
  - Nausea [Unknown]
  - Vomiting [Unknown]
  - Tremor [Unknown]
  - Irritability [Unknown]
  - Drug interaction [Unknown]
  - Hyperglycaemic hyperosmolar nonketotic syndrome [Recovered/Resolved]
  - Dehydration [Unknown]
  - Polyuria [Unknown]
  - Nocturia [Unknown]
  - Headache [Unknown]
